FAERS Safety Report 14581984 (Version 1)
Quarter: 2018Q1

REPORT INFORMATION
  Report Type: Spontaneous
  Country: US (occurrence: US)
  Receive Date: 20180228
  Receipt Date: 20180228
  Transmission Date: 20180509
  Serious: No
  Sender: FDA-Public Use
  Company Number: US-GLAXOSMITHKLINE-US2018032640

PATIENT
  Sex: Male

DRUGS (6)
  1. ANORO ELLIPTA [Suspect]
     Active Substance: UMECLIDINIUM BROMIDE\VILANTEROL TRIFENATATE
     Indication: BRONCHITIS CHRONIC
     Dosage: 1 PUFF(S), QD
     Route: 055
     Dates: start: 201712, end: 201801
  2. METOPROLOL ER [Concomitant]
     Active Substance: METOPROLOL SUCCINATE
  3. RANITIDINE. [Concomitant]
     Active Substance: RANITIDINE
  4. BREO ELLIPTA [Suspect]
     Active Substance: FLUTICASONE FUROATE\VILANTEROL TRIFENATATE
     Indication: BRONCHITIS CHRONIC
     Dosage: 1 PUFF(S), QD
     Route: 055
     Dates: start: 201801
  5. SULINDAC. [Concomitant]
     Active Substance: SULINDAC
  6. LOSARTAN. [Concomitant]
     Active Substance: LOSARTAN

REACTIONS (7)
  - Off label use [Unknown]
  - Dysphonia [Not Recovered/Not Resolved]
  - Drug ineffective [Unknown]
  - Drug effective for unapproved indication [Unknown]
  - Oral candidiasis [Not Recovered/Not Resolved]
  - Wrong technique in device usage process [Unknown]
  - Lower respiratory tract congestion [Unknown]
